FAERS Safety Report 7806387-1 (Version None)
Quarter: 2011Q4

REPORT INFORMATION
  Report Type: 
  Country: None (occurrence: None)
  Receive Date: 20111011
  Receipt Date: 20111006
  Transmission Date: 20120403
  Serious: Yes (Other)
  Sender: FDA-Public Use
  Company Number: CA-PFIZER INC-2011170799

PATIENT
  Age: 45 Year
  Sex: Male
  Weight: 82.086 kg

DRUGS (4)
  1. LYRICA [Suspect]
     Indication: PAIN
     Dosage: 300 MG, 2X/DAY
     Route: 048
     Dates: end: 20110201
  2. CYMBALTA [Concomitant]
     Indication: PAIN
     Dosage: 60 MG, 1X/DAY
     Dates: start: 20090101
  3. PERCOCET [Concomitant]
     Indication: PAIN
     Dosage: 5MG/325MG, 6-8 TABLETS PER DAY
  4. CYMBALTA [Concomitant]
     Indication: DEPRESSION

REACTIONS (2)
  - OSTEOPOROSIS [None]
  - INTERVERTEBRAL DISC COMPRESSION [None]
